FAERS Safety Report 9087222 (Version 1)
Quarter: 2013Q1

REPORT INFORMATION
  Report Type: Spontaneous
  Country: JP (occurrence: JP)
  Receive Date: 20130201
  Receipt Date: 20130201
  Transmission Date: 20140127
  Serious: Yes (Life-Threatening)
  Sender: FDA-Public Use
  Company Number: JP-ROCHE-1177989

PATIENT
  Age: 70 None
  Sex: Male
  Weight: 63 kg

DRUGS (13)
  1. AVASTIN [Suspect]
     Indication: COLON CANCER METASTATIC
     Route: 041
     Dates: start: 20120314, end: 20121122
  2. LEVOFOLINATE [Suspect]
     Indication: COLON CANCER METASTATIC
     Route: 041
     Dates: start: 20120314, end: 20121124
  3. ELPLAT [Suspect]
     Indication: COLON CANCER METASTATIC
     Route: 041
     Dates: start: 20120314, end: 20121124
  4. 5-FU [Suspect]
     Indication: COLON CANCER METASTATIC
     Route: 040
     Dates: start: 20120314, end: 20121124
  5. 5-FU [Suspect]
     Indication: COLON CANCER METASTATIC
     Route: 041
     Dates: start: 20120314, end: 20121124
  6. RESTAMIN [Concomitant]
     Indication: PROPHYLAXIS
     Route: 048
     Dates: start: 20120314, end: 20121124
  7. ZOFRAN [Concomitant]
     Indication: PROPHYLAXIS
     Route: 048
     Dates: start: 20120315, end: 20121126
  8. DECADRON [Concomitant]
     Indication: PROPHYLAXIS
     Route: 048
     Dates: start: 20120315, end: 20121126
  9. GASTER D [Concomitant]
     Indication: PROPHYLAXIS
     Route: 048
     Dates: start: 20120315, end: 20121126
  10. LEUCON [Concomitant]
     Indication: PROPHYLAXIS
     Route: 048
     Dates: start: 20120315, end: 20121126
  11. CEPHARANTHINE [Concomitant]
     Indication: PROPHYLAXIS
     Route: 048
     Dates: start: 20120315, end: 20121126
  12. FERO-GRADUMET [Concomitant]
     Indication: PROPHYLAXIS
     Route: 048
     Dates: start: 20120315, end: 20121126
  13. CELECOX [Concomitant]
     Indication: PROPHYLAXIS
     Route: 048
     Dates: start: 20120315, end: 20121126

REACTIONS (1)
  - Interstitial lung disease [Not Recovered/Not Resolved]
